FAERS Safety Report 5492524-3 (Version None)
Quarter: 2007Q4

REPORT INFORMATION
  Report Type: 
  Country: None (occurrence: None)
  Receive Date: 20071022
  Receipt Date: 20071010
  Transmission Date: 20080405
  Serious: Yes (Death, Hospitalization)
  Sender: FDA-Public Use
  Company Number: CA-SHR-CAN-2002-008054

PATIENT
  Age: 58 Year
  Sex: Female

DRUGS (4)
  1. BETASERON [Suspect]
     Indication: MULTIPLE SCLEROSIS
     Dosage: 8 MIU, EVERY 2D
     Route: 058
     Dates: start: 19890101, end: 20021111
  2. PREMARIN [Concomitant]
     Indication: HORMONE REPLACEMENT THERAPY
     Dosage: .625 MG, UNK
     Route: 048
     Dates: start: 19880701, end: 20020101
  3. PROVERA [Concomitant]
     Indication: HORMONE REPLACEMENT THERAPY
     Dosage: 10 MG, UNK
     Route: 048
     Dates: start: 19880701, end: 20020101
  4. ANDRIOL [Concomitant]
     Indication: HORMONE REPLACEMENT THERAPY
     Route: 048
     Dates: start: 20000101, end: 20020101

REACTIONS (4)
  - GASTROINTESTINAL DISORDER [None]
  - HEPATIC FAILURE [None]
  - PANCREATIC CARCINOMA [None]
  - PANCREATIC MASS [None]
